FAERS Safety Report 18132853 (Version 2)
Quarter: 2020Q3

REPORT INFORMATION
  Report Type: Spontaneous
  Country: US (occurrence: US)
  Receive Date: 20200811
  Receipt Date: 20200902
  Transmission Date: 20201103
  Serious: No
  Sender: FDA-Public Use
  Company Number: US-ASTRAZENECA-2020SE94911

PATIENT
  Age: 28158 Day
  Sex: Male
  Weight: 74.8 kg

DRUGS (4)
  1. SYMBICORT [Suspect]
     Active Substance: BUDESONIDE\FORMOTEROL FUMARATE DIHYDRATE
     Indication: DYSPNOEA
     Dosage: 1 PUFF TWICE A DAY
     Route: 055
  2. SYMBICORT [Suspect]
     Active Substance: BUDESONIDE\FORMOTEROL FUMARATE DIHYDRATE
     Indication: DYSPNOEA
     Dosage: 160/4.5 MCG 2 PUFFS TWICE A DAY
     Route: 055
  3. OXYGEN. [Concomitant]
     Active Substance: OXYGEN
  4. VENTOLIN [Concomitant]
     Active Substance: ALBUTEROL SULFATE

REACTIONS (4)
  - Intentional device misuse [Unknown]
  - Gait disturbance [Not Recovered/Not Resolved]
  - Incorrect dose administered [Recovered/Resolved]
  - Device issue [Unknown]
